FAERS Safety Report 21634846 (Version 1)
Quarter: 2022Q4

REPORT INFORMATION
  Report Type: Spontaneous
  Country: DE (occurrence: DE)
  Receive Date: 20221123
  Receipt Date: 20221123
  Transmission Date: 20230113
  Serious: Yes (Hospitalization, Other)
  Sender: FDA-Public Use
  Company Number: DE-PAIPHARMA-2022-DE-000204

PATIENT
  Age: 67 Year
  Sex: Female

DRUGS (4)
  1. PREDNISOLONE SODIUM PHOSPHATE [Suspect]
     Active Substance: PREDNISOLONE SODIUM PHOSPHATE
     Indication: Rheumatoid arthritis
     Route: 048
  2. PANTOPRAZOLE [Concomitant]
     Active Substance: PANTOPRAZOLE
  3. Tilidine and Naloxone [Concomitant]
  4. ADALIMUMAB [Concomitant]
     Active Substance: ADALIMUMAB

REACTIONS (1)
  - Reversible cerebral vasoconstriction syndrome [Recovered/Resolved]
